FAERS Safety Report 9493595 (Version 2)
Quarter: 2013Q3

REPORT INFORMATION
  Report Type: Report from Study
  Country: CO (occurrence: CO)
  Receive Date: 20130902
  Receipt Date: 20130911
  Transmission Date: 20140515
  Serious: Yes (Hospitalization)
  Sender: FDA-Public Use
  Company Number: CO-ROCHE-1268278

PATIENT
  Age: 65 Year
  Sex: Male

DRUGS (1)
  1. VALIXA [Suspect]
     Indication: RENAL TRANSPLANT
     Dosage: INDICATION: PROPHYLACTIC TREATMENT IN KIDNEY TRANSPLANT
     Route: 048
     Dates: start: 20130413

REACTIONS (1)
  - Venous thrombosis limb [Recovered/Resolved]
